FAERS Safety Report 5056450-6 (Version None)
Quarter: 2006Q3

REPORT INFORMATION
  Report Type: 
  Country: None (occurrence: None)
  Receive Date: 20060720
  Receipt Date: 20060714
  Transmission Date: 20061208
  Serious: Yes (Hospitalization)
  Sender: FDA-Public Use
  Company Number: NL-SANOFI-SYNTHELABO-F01200601657

PATIENT
  Sex: Female

DRUGS (3)
  1. AVASTIN [Suspect]
     Route: 041
     Dates: start: 20060629, end: 20060629
  2. CAPECITABINE [Suspect]
     Dosage: DAYS 1-14 (1250 MG/M2 AFTER CYCLE 6)
     Route: 048
     Dates: start: 20060629, end: 20060629
  3. OXALIPLATIN [Suspect]
     Indication: COLORECTAL CANCER
     Dosage: 210 MG
     Route: 041
     Dates: start: 20060629, end: 20060629

REACTIONS (1)
  - CEREBROVASCULAR ACCIDENT [None]
